FAERS Safety Report 4280768-8 (Version None)
Quarter: 2004Q1

REPORT INFORMATION
  Report Type: 
  Country: None (occurrence: None)
  Receive Date: 20040127
  Receipt Date: 20040116
  Transmission Date: 20041129
  Serious: Yes (Hospitalization)
  Sender: FDA-Public Use
  Company Number: 2003IM001224

PATIENT
  Age: 68 Year
  Sex: Female

DRUGS (6)
  1. ADVAFERON (A643_INTERFERON ALFACON-1) [Suspect]
     Indication: HEPATITIS C
     Dosage: 18 MU; QD; SUBCUTANEOUS
     Route: 058
     Dates: start: 20031008
  2. URSODEOXYCHOLIC ACID [Concomitant]
  3. GLYCYRON [Concomitant]
  4. DICLOFENAC SODIUM [Concomitant]
  5. SODIUM GUALENATE [Concomitant]
  6. IFENPRODIL TARTRATE [Concomitant]

REACTIONS (1)
  - BLOOD AMYLASE INCREASED [None]
